FAERS Safety Report 12986422 (Version 1)
Quarter: 2016Q4

REPORT INFORMATION
  Report Type: Spontaneous
  Country: US (occurrence: US)
  Receive Date: 20161130
  Receipt Date: 20161130
  Transmission Date: 20170207
  Serious: Yes (Hospitalization, Other)
  Sender: FDA-Public Use
  Company Number: US-NOVOPROD-520289

PATIENT
  Age: 6 Year
  Sex: Female
  Weight: 49.89 kg

DRUGS (1)
  1. NOVOLOG [Suspect]
     Active Substance: INSULIN ASPART
     Indication: TYPE 1 DIABETES MELLITUS
     Dosage: SLIDING SCALE
     Route: 058
     Dates: start: 200608

REACTIONS (4)
  - Blood glucose increased [Recovered/Resolved]
  - Urinary retention [Recovered/Resolved]
  - Blood ketone body increased [Recovered/Resolved]
  - Blood ketone body increased [Recovered/Resolved]

NARRATIVE: CASE EVENT DATE: 201212
